FAERS Safety Report 24348661 (Version 1)
Quarter: 2024Q3

REPORT INFORMATION
  Report Type: Spontaneous
  Country: US (occurrence: US)
  Receive Date: 20240923
  Receipt Date: 20240923
  Transmission Date: 20241017
  Serious: Yes (Other)
  Sender: Haleon PLC
  Company Number: US-HALEON-2197662

PATIENT
  Age: 60 Year
  Sex: Male
  Weight: 92.1 kg

DRUGS (2)
  1. ADVIL [Suspect]
     Active Substance: IBUPROFEN\IBUPROFEN SODIUM
     Indication: Product used for unknown indication
  2. VIVITROL [Suspect]
     Active Substance: NALTREXONE
     Indication: Alcoholism
     Dosage: EXPDATE:20261031 FOR EXTENDED RELEASE INJECTION, INTRAMUSCULAR-GLUTEAL
     Route: 030

REACTIONS (1)
  - Renal failure [Recovered/Resolved]
